FAERS Safety Report 21527811 (Version 1)
Quarter: 2022Q4

REPORT INFORMATION
  Report Type: Spontaneous
  Country: US (occurrence: US)
  Receive Date: 20221031
  Receipt Date: 20221031
  Transmission Date: 20230112
  Serious: Yes (Other)
  Sender: FDA-Public Use
  Company Number: US-PFIZER INC-202201237117

PATIENT
  Age: 63 Year
  Sex: Male

DRUGS (2)
  1. ENCORAFENIB [Suspect]
     Active Substance: ENCORAFENIB
     Indication: Conjunctival melanoma
     Dosage: UNK
  2. BINIMETINIB [Suspect]
     Active Substance: BINIMETINIB
     Indication: Conjunctival melanoma
     Dosage: UNK

REACTIONS (4)
  - Conjunctival oedema [Recovered/Resolved]
  - Conjunctivitis [Recovered/Resolved]
  - Fatigue [Recovered/Resolved]
  - Myalgia [Recovered/Resolved]
